FAERS Safety Report 22625095 (Version 1)
Quarter: 2023Q2

REPORT INFORMATION
  Report Type: Spontaneous
  Country: GB (occurrence: GB)
  Receive Date: 20230621
  Receipt Date: 20230621
  Transmission Date: 20230721
  Serious: Yes (Other)
  Sender: FDA-Public Use
  Company Number: GB-MHRA-MED-202306060758265750-PVBFN

PATIENT
  Age: 47 Year
  Sex: Female
  Weight: 56 kg

DRUGS (3)
  1. PROSTIN E2 [Suspect]
     Active Substance: DINOPROSTONE
     Indication: Labour induction
     Dosage: 1 X 3 MG ON A 5 DAY PERIOD
     Route: 050
  2. DINOPROSTONE [Suspect]
     Active Substance: DINOPROSTONE
     Indication: Labour induction
     Dosage: 3 X ON A 5 DAY PERIOD
     Route: 050
     Dates: start: 20220524, end: 20220528
  3. FOLIC ACID [Concomitant]
     Active Substance: FOLIC ACID
     Indication: Vitamin supplementation
     Dosage: 400 UG;

REACTIONS (2)
  - Uterine hyperstimulation [Recovered/Resolved]
  - Maternal distress during labour [Recovered/Resolved]

NARRATIVE: CASE EVENT DATE: 20220528
